FAERS Safety Report 6976990-X (Version None)
Quarter: 2010Q3

REPORT INFORMATION
  Report Type: 
  Country: None (occurrence: None)
  Receive Date: 20100910
  Receipt Date: 20100901
  Transmission Date: 20110219
  Serious: Yes (Hospitalization)
  Sender: FDA-Public Use
  Company Number: BR-ROCHE-725164

PATIENT
  Sex: Female
  Weight: 74 kg

DRUGS (2)
  1. TOCILIZUMAB [Suspect]
     Indication: RHEUMATOID ARTHRITIS
     Route: 065
     Dates: start: 20100706, end: 20100706
  2. ARADOIS H [Concomitant]
     Dosage: DOSE: 50/12.5 MG

REACTIONS (4)
  - HYPERTENSION [None]
  - MIGRAINE [None]
  - NAUSEA [None]
  - URTICARIA [None]
